FAERS Safety Report 6220229-X (Version None)
Quarter: 2009Q2

REPORT INFORMATION
  Report Type: 
  Country: None (occurrence: None)
  Receive Date: 20090609
  Receipt Date: 20090526
  Transmission Date: 20091009
  Serious: Yes (Life-Threatening, Other)
  Sender: FDA-Public Use
  Company Number: US-ELI_LILLY_AND_COMPANY-US200812004526

PATIENT
  Sex: Female
  Weight: 56.689 kg

DRUGS (6)
  1. CYMBALTA [Suspect]
     Indication: ANXIETY
     Dosage: 30 MG, DAILY (1/D)
     Dates: start: 20081203, end: 20081204
  2. ALPRAZOLAM [Concomitant]
     Indication: ANXIETY
     Dosage: 0.5 MG, UNK
  3. HYDROCODONE BITARTRATE AND ACETAMINOPHEN [Concomitant]
     Indication: PAIN
     Dosage: 1 D/F, DAILY (1/D)
  4. HYDROXYZINE [Concomitant]
     Indication: INSOMNIA
     Dosage: 10 MG, UNK
  5. TRIAMCINOLONE [Concomitant]
  6. LEXAPRO [Concomitant]
     Dosage: 10 MG, UNK
     Dates: end: 20081202

REACTIONS (4)
  - DYSPNOEA [None]
  - EYE SWELLING [None]
  - SWELLING FACE [None]
  - URTICARIA [None]
